FAERS Safety Report 10636745 (Version 2)
Quarter: 2014Q4

REPORT INFORMATION
  Report Type: Spontaneous
  Country: IT (occurrence: IT)
  Receive Date: 20141208
  Receipt Date: 20141208
  Transmission Date: 20150529
  Serious: Yes (Other)
  Sender: FDA-Public Use
  Company Number: IT-THROMBOGENICS NV-SPO-2014-0620

PATIENT
  Age: 44 Year
  Sex: Female

DRUGS (1)
  1. JETREA [Suspect]
     Active Substance: OCRIPLASMIN
     Indication: VITREOUS ADHESIONS
     Dosage: 0.125 MG, ONE TIME DOSE
     Route: 031
     Dates: start: 20140509, end: 20140509

REACTIONS (3)
  - Vitreous floaters [Recovered/Resolved]
  - Chromatopsia [Recovered/Resolved]
  - Retinal injury [Recovered/Resolved]

NARRATIVE: CASE EVENT DATE: 20140510
